FAERS Safety Report 13234032 (Version 2)
Quarter: 2017Q2

REPORT INFORMATION
  Report Type: Report from Study
  Country: GB (occurrence: GB)
  Receive Date: 20170215
  Receipt Date: 20170606
  Transmission Date: 20170830
  Serious: Yes (Hospitalization)
  Sender: FDA-Public Use
  Company Number: GB-ROCHE-1887850

PATIENT
  Age: 75 Year
  Sex: Male
  Weight: 81 kg

DRUGS (3)
  1. COCODAMOL [Concomitant]
     Active Substance: ACETAMINOPHEN\CODEINE PHOSPHATE
     Indication: PAIN
     Route: 048
     Dates: start: 201606
  2. ATEZOLIZUMAB [Suspect]
     Active Substance: ATEZOLIZUMAB
     Indication: NEOPLASM MALIGNANT
     Dosage: DOSE VARIES (PER PROTOCOL)?THE DATE OF THE MOST RECENT DOSE OF ATEZOLIZUMAB 1200 MG PRIOR TO SAE ONS
     Route: 042
     Dates: start: 20160901
  3. NUROFEN [Concomitant]
     Active Substance: IBUPROFEN
     Indication: PAIN
     Route: 048
     Dates: start: 20170106

REACTIONS (1)
  - Spinal cord compression [Recovered/Resolved]

NARRATIVE: CASE EVENT DATE: 20170130
